FAERS Safety Report 12281326 (Version 1)
Quarter: 2016Q2

REPORT INFORMATION
  Report Type: Spontaneous
  Country: US (occurrence: None)
  Receive Date: 20160418
  Receipt Date: 20160418
  Transmission Date: 20160815
  Serious: Yes (Other)
  Sender: FDA-Public Use
  Company Number: None

PATIENT
  Age: 86 Year
  Weight: 83.92 kg

DRUGS (3)
  1. PREDSNISONE [Concomitant]
  2. COLISTIMETHATE (INHALED) [Suspect]
     Active Substance: COLISTIMETHATE SODIUM
     Indication: PNEUMONIA
     Route: 055
     Dates: start: 20160215, end: 20160215
  3. IBUPROFIN [Concomitant]

REACTIONS (12)
  - Cardiac fibrillation [None]
  - Choking [None]
  - Speech disorder [None]
  - Toxicity to various agents [None]
  - Renal impairment [None]
  - Dyspnoea [None]
  - Respiratory arrest [None]
  - Acute respiratory failure [None]
  - Cardiac arrest [None]
  - Product preparation error [None]
  - Incorrect product storage [None]
  - Dysphagia [None]

NARRATIVE: CASE EVENT DATE: 20160215
